FAERS Safety Report 7804571-4 (Version None)
Quarter: 2011Q4

REPORT INFORMATION
  Report Type: 
  Country: None (occurrence: None)
  Receive Date: 20111010
  Receipt Date: 20110926
  Transmission Date: 20120403
  Serious: Yes (Other)
  Sender: FDA-Public Use
  Company Number: JP-PFIZER INC-2011239704

PATIENT
  Age: 67 Year
  Sex: Female
  Weight: 43 kg

DRUGS (10)
  1. ISOVORIN [Suspect]
     Indication: RECTAL CANCER
     Dosage: 275 MG/BODY
     Route: 041
     Dates: start: 20110609, end: 20110818
  2. FUROSEMIDE [Concomitant]
     Dosage: UNK
     Route: 048
  3. FLUOROURACIL [Suspect]
     Dosage: 3200 MG/BODY/D1-2
     Route: 041
     Dates: start: 20110609, end: 20110818
  4. HANGE-SHASHIN-TO [Concomitant]
     Dosage: UNK
     Route: 048
  5. DECADRON [Concomitant]
     Route: 048
  6. ENALAPRIL MALEATE [Concomitant]
     Dosage: UNK
     Route: 048
  7. CAMPTOSAR [Suspect]
     Indication: RECTAL CANCER
     Dosage: 250 MG/BODY
     Route: 041
     Dates: start: 20110609, end: 20110818
  8. NIFEDIPINE [Concomitant]
     Dosage: UNK
     Route: 048
  9. FLUOROURACIL [Suspect]
     Indication: RECTAL CANCER
     Dosage: 550 MG/BODY
     Route: 040
     Dates: start: 20110609, end: 20110818
  10. FILGRASTIM [Concomitant]
     Dosage: UNK
     Route: 058

REACTIONS (3)
  - HAEMOGLOBIN DECREASED [None]
  - CORNEAL DISORDER [None]
  - VISUAL ACUITY REDUCED [None]
